FAERS Safety Report 17525133 (Version 1)
Quarter: 2020Q1

REPORT INFORMATION
  Report Type: Spontaneous
  Country: US (occurrence: US)
  Receive Date: 20200310
  Receipt Date: 20200310
  Transmission Date: 20200409
  Serious: Yes (Other)
  Sender: FDA-Public Use
  Company Number: US-MYLANLABS-2020M1025310

PATIENT
  Age: 48 Year
  Sex: Female
  Weight: 117 kg

DRUGS (3)
  1. EMSAM [Suspect]
     Active Substance: SELEGILINE
     Indication: MAJOR DEPRESSION
     Dosage: UNK
     Dates: start: 20200228
  2. EMSAM [Suspect]
     Active Substance: SELEGILINE
     Indication: MAJOR DEPRESSION
     Dosage: UNK UNK, QD
     Route: 062
     Dates: start: 202001
  3. EMSAM [Suspect]
     Active Substance: SELEGILINE
     Indication: MAJOR DEPRESSION
     Dosage: UNK, QD
     Dates: start: 201911

REACTIONS (5)
  - Insomnia [Recovered/Resolved]
  - Application site irritation [Not Recovered/Not Resolved]
  - Application site rash [Not Recovered/Not Resolved]
  - Drug ineffective [Recovered/Resolved]
  - Application site erythema [Not Recovered/Not Resolved]

NARRATIVE: CASE EVENT DATE: 201911
